FAERS Safety Report 21746648 (Version 3)
Quarter: 2023Q1

REPORT INFORMATION
  Report Type: Report from Study
  Country: GT (occurrence: GT)
  Receive Date: 20221219
  Receipt Date: 20230329
  Transmission Date: 20230417
  Serious: Yes (Other)
  Sender: FDA-Public Use
  Company Number: GT-002147023-NVSC2022GT291337

PATIENT
  Age: 82 Year
  Sex: Female

DRUGS (1)
  1. KISQALI [Suspect]
     Active Substance: RIBOCICLIB
     Indication: Breast cancer
     Dosage: 600 MG, QD
     Route: 048
     Dates: start: 2016, end: 20221222

REACTIONS (15)
  - Decreased immune responsiveness [Unknown]
  - Infection [Unknown]
  - Bicytopenia [Unknown]
  - Haemoglobin decreased [Unknown]
  - Ecchymosis [Unknown]
  - Abdominal discomfort [Unknown]
  - Capillary fragility [Unknown]
  - Blood pressure abnormal [Unknown]
  - Pain [Unknown]
  - Hypersensitivity [Unknown]
  - Contusion [Unknown]
  - Gait disturbance [Unknown]
  - Illness [Unknown]
  - Feeling abnormal [Unknown]
  - Peripheral swelling [Unknown]

NARRATIVE: CASE EVENT DATE: 20221201
